FAERS Safety Report 7122138-0 (Version None)
Quarter: 2010Q4

REPORT INFORMATION
  Report Type: 
  Country: None (occurrence: None)
  Receive Date: 20101124
  Receipt Date: 20101119
  Transmission Date: 20110411
  Serious: No
  Sender: FDA-Public Use
  Company Number: US-TEVA-256225USA

PATIENT

DRUGS (2)
  1. AZILECT [Suspect]
     Route: 048
     Dates: start: 20100720
  2. ROPINIROLE HYDROCHLORIDE [Suspect]
     Dates: start: 20100720

REACTIONS (2)
  - ALOPECIA [None]
  - WEIGHT DECREASED [None]
